FAERS Safety Report 5405875-5 (Version None)
Quarter: 2007Q3

REPORT INFORMATION
  Report Type: 
  Country: None (occurrence: None)
  Receive Date: 20070806
  Receipt Date: 20070726
  Transmission Date: 20080115
  Serious: Yes (Hospitalization)
  Sender: FDA-Public Use
  Company Number: JP-AMGEN-US236021

PATIENT
  Sex: Female
  Weight: 73 kg

DRUGS (14)
  1. ENBREL [Suspect]
     Indication: RHEUMATOID ARTHRITIS
     Route: 058
     Dates: start: 20050520, end: 20051220
  2. ENBREL [Suspect]
     Route: 058
     Dates: start: 20051221, end: 20060117
  3. ENBREL [Suspect]
     Route: 058
     Dates: start: 20060201, end: 20070604
  4. RHEUMATREX [Suspect]
     Indication: RHEUMATOID ARTHRITIS
     Dosage: UNKNOWN
     Route: 048
     Dates: start: 20060201, end: 20070608
  5. ZANTAC 150 [Concomitant]
     Indication: GASTRITIS PROPHYLAXIS
     Route: 048
     Dates: start: 20060201, end: 20070520
  6. ACTONEL [Concomitant]
     Indication: OSTEOPOROSIS PROPHYLAXIS
     Route: 048
     Dates: start: 20060201
  7. HYPEN [Concomitant]
     Indication: RHEUMATOID ARTHRITIS
     Route: 048
     Dates: start: 20070104
  8. FOLIAMIN [Concomitant]
     Indication: LIVER DISORDER
     Route: 048
     Dates: start: 20061129, end: 20070326
  9. FOLIAMIN [Concomitant]
     Route: 048
     Dates: start: 20070327
  10. SELBEX [Concomitant]
     Indication: GASTRITIS PROPHYLAXIS
     Route: 048
     Dates: start: 20060201
  11. MEDROL [Concomitant]
     Indication: RHEUMATOID ARTHRITIS
     Route: 048
     Dates: start: 20060201, end: 20061003
  12. MEDROL [Concomitant]
     Route: 048
     Dates: start: 20061004, end: 20061031
  13. MEDROL [Concomitant]
     Route: 048
     Dates: start: 20061101, end: 20070616
  14. OSTELUC 200 [Concomitant]
     Indication: RHEUMATOID ARTHRITIS
     Route: 048
     Dates: start: 20060201, end: 20070103

REACTIONS (2)
  - POST PROCEDURAL INFECTION [None]
  - WOUND INFECTION STAPHYLOCOCCAL [None]
